FAERS Safety Report 19474809 (Version 1)
Quarter: 2021Q2

REPORT INFORMATION
  Report Type: Spontaneous
  Country: GB (occurrence: GB)
  Receive Date: 20210630
  Receipt Date: 20210630
  Transmission Date: 20210717
  Serious: Yes (Other)
  Sender: FDA-Public Use
  Company Number: GB-CLOVIS ONCOLOGY-CLO-2021-001004

PATIENT

DRUGS (3)
  1. RUBRACA [Suspect]
     Active Substance: RUCAPARIB CAMSYLATE
     Indication: PRODUCT USED FOR UNKNOWN INDICATION
     Dosage: UNK
     Dates: end: 202010
  2. RUBRACA [Suspect]
     Active Substance: RUCAPARIB CAMSYLATE
     Dosage: 500 MILLIGRAM, BID
     Dates: start: 202010, end: 202011
  3. RUBRACA [Suspect]
     Active Substance: RUCAPARIB CAMSYLATE
     Dosage: 400 MILLIGRAM, BID
     Dates: start: 202011

REACTIONS (5)
  - Fatigue [Recovering/Resolving]
  - Mood altered [Recovering/Resolving]
  - Hypothyroidism [Unknown]
  - Adverse event [Unknown]
  - Dyspepsia [Unknown]

NARRATIVE: CASE EVENT DATE: 202010
